FAERS Safety Report 6126977-4 (Version None)
Quarter: 2009Q1

REPORT INFORMATION
  Report Type: 
  Country: None (occurrence: None)
  Receive Date: 20090320
  Receipt Date: 20090313
  Transmission Date: 20090719
  Serious: Yes (Other)
  Sender: FDA-Public Use
  Company Number: US-B.I. PHARMACEUTICALS,INC./RIDGEFIELD-2009-BP-03173BP

PATIENT
  Age: 84 Year
  Sex: Female

DRUGS (4)
  1. SPIRIVA [Suspect]
     Indication: CHRONIC OBSTRUCTIVE PULMONARY DISEASE
     Dosage: 18MCG
     Route: 055
     Dates: start: 20050901
  2. OXYGEN [Concomitant]
     Indication: CHRONIC OBSTRUCTIVE PULMONARY DISEASE
  3. CHANTIX [Concomitant]
     Indication: SMOKING CESSATION THERAPY
  4. UNNAMED BLOOD PRESSURE MEDICATIONS [Concomitant]

REACTIONS (6)
  - ASTHENIA [None]
  - CORNEAL TRANSPLANT [None]
  - DYSPHONIA [None]
  - DYSPNOEA [None]
  - FEELING ABNORMAL [None]
  - NASOPHARYNGITIS [None]
